FAERS Safety Report 24421759 (Version 1)
Quarter: 2024Q4

REPORT INFORMATION
  Report Type: Spontaneous
  Country: US (occurrence: US)
  Receive Date: 20241010
  Receipt Date: 20241010
  Transmission Date: 20250114
  Serious: Yes (Life-Threatening, Other)
  Sender: DR REDDYS
  Company Number: None

PATIENT
  Age: 57 Year
  Sex: Female

DRUGS (1)
  1. AMIODARONE [Suspect]
     Active Substance: AMIODARONE
     Indication: Atrial flutter
     Dosage: LONG-TERM UNMONITORED AMIODARONE USE
     Route: 048

REACTIONS (5)
  - Adrenal insufficiency [Recovered/Resolved]
  - Decompensated hypothyroidism [Recovered/Resolved]
  - Hypotension [Recovered/Resolved]
  - Encephalopathy [Recovered/Resolved]
  - Hypothyroidism [Recovered/Resolved]
